FAERS Safety Report 5732902-8 (Version None)
Quarter: 2008Q2

REPORT INFORMATION
  Report Type: 
  Country: None (occurrence: None)
  Receive Date: 20080509
  Receipt Date: 20080221
  Transmission Date: 20081010
  Serious: No
  Sender: FDA-Public Use
  Company Number: A0711036A

PATIENT
  Sex: Male

DRUGS (1)
  1. COREG CR [Suspect]
     Indication: CARDIAC FAILURE
     Dosage: 60MGD PER DAY
     Route: 048

REACTIONS (4)
  - CARDIAC DISORDER [None]
  - ERYTHEMA [None]
  - PAIN IN EXTREMITY [None]
  - SKIN CHAPPED [None]
